FAERS Safety Report 12218820 (Version 3)
Quarter: 2016Q2

REPORT INFORMATION
  Report Type: Spontaneous
  Country: CA (occurrence: CA)
  Receive Date: 20160329
  Receipt Date: 20160415
  Transmission Date: 20160815
  Serious: Yes (Other)
  Sender: FDA-Public Use
  Company Number: CA-PFIZER INC-2016176516

PATIENT
  Age: 5 Year
  Sex: Male

DRUGS (1)
  1. XYNTHA [Suspect]
     Active Substance: ANTIHEMOPHILIC FACTOR, HUMAN RECOMBINANT RESIDUES 743-1636 DELETED
     Indication: FACTOR VIII DEFICIENCY
     Dosage: 500 IU, UNK
     Route: 042

REACTIONS (4)
  - Nasal congestion [Unknown]
  - Vein rupture [Unknown]
  - Fatigue [Unknown]
  - Vein collapse [Unknown]

NARRATIVE: CASE EVENT DATE: 20160321
